FAERS Safety Report 14145437 (Version 1)
Quarter: 2017Q4

REPORT INFORMATION
  Report Type: Spontaneous
  Country: US (occurrence: US)
  Receive Date: 20171031
  Receipt Date: 20171031
  Transmission Date: 20180321
  Serious: Yes (Hospitalization)
  Sender: FDA-Public Use
  Company Number: US-PFIZER INC-2017171244

PATIENT
  Age: 66 Year
  Sex: Female
  Weight: 68.27 kg

DRUGS (5)
  1. XELJANZ XR [Suspect]
     Active Substance: TOFACITINIB CITRATE
     Dosage: 11 MG, DAILY
     Route: 048
  2. FOLIC ACID. [Concomitant]
     Active Substance: FOLIC ACID
     Indication: ADVERSE DRUG REACTION
     Dosage: 1 MG, 1X/DAY
     Route: 048
     Dates: start: 2014
  3. XELJANZ XR [Suspect]
     Active Substance: TOFACITINIB CITRATE
     Indication: RHEUMATOID ARTHRITIS
     Dosage: 11 MG, DAILY
     Route: 048
     Dates: start: 2017
  4. MOBIC [Concomitant]
     Active Substance: MELOXICAM
     Indication: RHEUMATOID ARTHRITIS
     Dosage: 15 MG, AS NEEDED (ONCE A DAY BY MOUTH AS NEEDED)
     Route: 048
  5. NATURE-THROID [Concomitant]
     Active Substance: THYROID, PORCINE
     Indication: HYPOTHYROIDISM
     Dosage: 162.5 MG, 1X/DAY
     Route: 048
     Dates: start: 2014

REACTIONS (5)
  - Malaise [Recovered/Resolved]
  - Diverticulitis [Recovered/Resolved]
  - Disease recurrence [Recovered/Resolved]
  - Post procedural haemorrhage [Unknown]
  - Large intestine perforation [Recovered/Resolved]

NARRATIVE: CASE EVENT DATE: 201706
